FAERS Safety Report 8414679-0 (Version None)
Quarter: 2012Q2

REPORT INFORMATION
  Report Type: 
  Country: None (occurrence: None)
  Receive Date: 20120605
  Receipt Date: 20120529
  Transmission Date: 20120825
  Serious: Yes (Hospitalization, Other)
  Sender: FDA-Public Use
  Company Number: US-MERCK-1205USA02737

PATIENT
  Age: 89 Year
  Sex: Female

DRUGS (7)
  1. JANUVIA [Suspect]
     Indication: TYPE 2 DIABETES MELLITUS
     Route: 048
     Dates: start: 20120501
  2. CRESTOR [Concomitant]
     Route: 065
  3. FUROSEMIDE [Concomitant]
     Route: 065
  4. BYSTOLIC [Concomitant]
     Route: 065
  5. KLOR-CON [Concomitant]
     Route: 065
  6. JANUVIA [Suspect]
     Route: 048
     Dates: start: 20070101, end: 20110601
  7. BENICAR [Concomitant]
     Route: 065

REACTIONS (2)
  - CERVIX CANCER METASTATIC [None]
  - CARBOHYDRATE ANTIGEN 125 INCREASED [None]
